FAERS Safety Report 6253816-3 (Version None)
Quarter: 2009Q2

REPORT INFORMATION
  Report Type: 
  Country: None (occurrence: None)
  Receive Date: 20090630
  Receipt Date: 20090630
  Transmission Date: 20091009
  Serious: Yes (Life-Threatening, Hospitalization, Other)
  Sender: FDA-Public Use
  Company Number: None

PATIENT
  Sex: Female
  Weight: 33.1126 kg

DRUGS (1)
  1. METHOTREXATE [Suspect]
     Indication: PITYRIASIS RUBRA PILARIS
     Dosage: 7.5MG DAILY PO
     Route: 048
     Dates: start: 20080501, end: 20080507

REACTIONS (19)
  - ANOREXIA [None]
  - ASTHENIA [None]
  - BLOOD COUNT ABNORMAL [None]
  - DRUG PRESCRIBING ERROR [None]
  - DRUG TOXICITY [None]
  - GAMMA-GLUTAMYLTRANSFERASE INCREASED [None]
  - GASTROINTESTINAL DISORDER [None]
  - HAEMORRHAGE [None]
  - HEPATIC FUNCTION ABNORMAL [None]
  - IMMUNE SYSTEM DISORDER [None]
  - INAPPROPRIATE SCHEDULE OF DRUG ADMINISTRATION [None]
  - INTESTINAL GANGRENE [None]
  - MALAISE [None]
  - MEDICATION ERROR [None]
  - NAUSEA [None]
  - OVERDOSE [None]
  - RENAL FAILURE ACUTE [None]
  - VOMITING [None]
  - WEIGHT DECREASED [None]
